FAERS Safety Report 21555204 (Version 20)
Quarter: 2024Q4

REPORT INFORMATION
  Report Type: Report from Study
  Country: CA (occurrence: CA)
  Receive Date: 20221104
  Receipt Date: 20241011
  Transmission Date: 20250114
  Serious: Yes (Other)
  Sender: ROCHE
  Company Number: CA-ROCHE-3212976

PATIENT
  Age: 58 Year
  Sex: Female

DRUGS (2)
  1. OCREVUS [Suspect]
     Active Substance: OCRELIZUMAB
     Indication: Relapsing-remitting multiple sclerosis
     Dosage: 300 MG AT DAY 0 AND 14, THEN 600 MG EVERY 6 MONTH?MOST RECENT DOSE OF OCRELIZUMAB:20/DEC/2021
     Route: 042
     Dates: start: 20200925
  2. PAXLOVID [Suspect]
     Active Substance: NIRMATRELVIR\RITONAVIR
     Indication: Product used for unknown indication
     Route: 065

REACTIONS (11)
  - COVID-19 [Not Recovered/Not Resolved]
  - Loss of consciousness [Unknown]
  - Flushing [Unknown]
  - Gastrointestinal disorder [Recovered/Resolved]
  - Chills [Unknown]
  - Muscular weakness [Unknown]
  - Asthenia [Unknown]
  - Back pain [Not Recovered/Not Resolved]
  - Nightmare [Unknown]
  - Sinusitis [Unknown]
  - Off label use [Unknown]
